FAERS Safety Report 9972196 (Version 1)
Quarter: 2014Q1

REPORT INFORMATION
  Report Type: Report from Study
  Country: US (occurrence: US)
  Receive Date: 20140306
  Receipt Date: 20140306
  Transmission Date: 20141002
  Serious: No
  Sender: FDA-Public Use
  Company Number: US-ABBVIE-13P-163-1147684-00

PATIENT
  Age: 62 Year
  Sex: Female

DRUGS (1)
  1. HUMIRA [Suspect]
     Indication: PSORIATIC ARTHROPATHY
     Route: 058
     Dates: start: 20130625

REACTIONS (4)
  - Drug dose omission [Not Recovered/Not Resolved]
  - Bronchitis [Recovered/Resolved]
  - Arthritis [Recovering/Resolving]
  - Arthralgia [Recovering/Resolving]
